FAERS Safety Report 24377539 (Version 1)
Quarter: 2024Q3

REPORT INFORMATION
  Report Type: Report from Study
  Country: US (occurrence: US)
  Receive Date: 20240930
  Receipt Date: 20240930
  Transmission Date: 20241017
  Serious: No
  Sender: ACADIA PHARMACEUTICALS
  Company Number: US-ACADIA PHARMACEUTICALS INC.-ACA-2024-PIM-005598

PATIENT
  Sex: Male

DRUGS (24)
  1. NUPLAZID [Suspect]
     Active Substance: PIMAVANSERIN TARTRATE
     Indication: Parkinson^s disease psychosis
     Dosage: 34 MILLIGRAM, QD
     Route: 048
     Dates: start: 202409
  2. NUPLAZID [Suspect]
     Active Substance: PIMAVANSERIN TARTRATE
     Indication: Parkinson^s disease
  3. CENTRUM SILVER [ASCORBIC ACID;BETACAROTENE;BIOTIN;CALCIUM;CHROMIUM;COL [Concomitant]
  4. TRAZIMERA [Concomitant]
     Active Substance: TRASTUZUMAB-QYYP
  5. FINASTERIDE [Concomitant]
     Active Substance: FINASTERIDE
  6. NIACIN [Concomitant]
     Active Substance: NIACIN
  7. FISH OIL [Concomitant]
     Active Substance: FISH OIL
  8. MIRTAZAPINE [Concomitant]
     Active Substance: MIRTAZAPINE
  9. LOSARTAN POTASSIUM [Concomitant]
     Active Substance: LOSARTAN POTASSIUM
  10. GABAPENTIN [Concomitant]
     Active Substance: GABAPENTIN
  11. ARIPIPRAZOLE [Concomitant]
     Active Substance: ARIPIPRAZOLE
  12. ROSUVASTATIN CALCIUM [Concomitant]
     Active Substance: ROSUVASTATIN CALCIUM
  13. LYSINE [Concomitant]
     Active Substance: LYSINE
  14. ALFUZOSIN [Concomitant]
     Active Substance: ALFUZOSIN
  15. FENOFIBRATE [Concomitant]
     Active Substance: FENOFIBRATE
  16. ROPINIROLE [Concomitant]
     Active Substance: ROPINIROLE
  17. MOMETASONE FUROATE [Concomitant]
     Active Substance: MOMETASONE FUROATE
  18. CLONAZEPAM [Concomitant]
     Active Substance: CLONAZEPAM
  19. METFORMIN [Concomitant]
     Active Substance: METFORMIN HYDROCHLORIDE
  20. LATUDA [Concomitant]
     Active Substance: LURASIDONE HYDROCHLORIDE
  21. RYTARY [Concomitant]
     Active Substance: CARBIDOPA\LEVODOPA
  22. BENFOTIAMINE [Concomitant]
     Active Substance: BENFOTIAMINE
  23. MAGNESIUM OXIDE [Concomitant]
     Active Substance: MAGNESIUM OXIDE
  24. VITAMIN D3 [Concomitant]
     Active Substance: CHOLECALCIFEROL

REACTIONS (3)
  - Dizziness postural [Unknown]
  - Balance disorder [Unknown]
  - Brain fog [Not Recovered/Not Resolved]
